APPROVED DRUG PRODUCT: QUINIDINE SULFATE
Active Ingredient: QUINIDINE SULFATE
Strength: 200MG
Dosage Form/Route: TABLET;ORAL
Application: A084627 | Product #001
Applicant: PHARMAVITE PHARMACEUTICALS
Approved: Approved Prior to Jan 1, 1982 | RLD: No | RS: No | Type: DISCN